FAERS Safety Report 8314584-4 (Version None)
Quarter: 2012Q2

REPORT INFORMATION
  Report Type: 
  Country: None (occurrence: None)
  Receive Date: 20120426
  Receipt Date: 20120417
  Transmission Date: 20120825
  Serious: Yes (Hospitalization)
  Sender: FDA-Public Use
  Company Number: US-ASTRAZENECA-2011SE42550

PATIENT
  Age: 82 Year
  Sex: Female

DRUGS (2)
  1. PRILOSEC OTC [Suspect]
     Route: 048
  2. NEXIUM [Suspect]
     Route: 048

REACTIONS (5)
  - DIABETES MELLITUS [None]
  - PERONEAL NERVE PALSY [None]
  - DYSPEPSIA [None]
  - DRUG INEFFECTIVE [None]
  - ATRIAL FIBRILLATION [None]
